FAERS Safety Report 5325635-3 (Version None)
Quarter: 2007Q2

REPORT INFORMATION
  Report Type: 
  Country: None (occurrence: None)
  Receive Date: 20070515
  Receipt Date: 20070507
  Transmission Date: 20071010
  Serious: Yes (Hospitalization)
  Sender: FDA-Public Use
  Company Number: FI-ABBOTT-07P-055-0366521-00

PATIENT
  Sex: Female
  Weight: 14.8 kg

DRUGS (3)
  1. KLACID [Suspect]
     Indication: VIRAL INFECTION
     Dates: start: 20061219, end: 20061225
  2. TOPIRAMATE [Suspect]
     Indication: EPILEPSY
     Dosage: 2.5 TABLETS PER DAY
  3. VALPROATE SODIUM [Concomitant]
     Indication: EPILEPSY
     Dosage: AT THERAPEUTIC LEVELS

REACTIONS (5)
  - APATHY [None]
  - CONVULSION [None]
  - CRYING [None]
  - HEAD LAG [None]
  - MIDDLE INSOMNIA [None]
